FAERS Safety Report 24238357 (Version 2)
Quarter: 2024Q3

REPORT INFORMATION
  Report Type: Spontaneous
  Country: US (occurrence: US)
  Receive Date: 20240822
  Receipt Date: 20240903
  Transmission Date: 20241016
  Serious: Yes (Death, Other)
  Sender: ORGANON
  Company Number: US-ORGANON-O2408USA001465

PATIENT

DRUGS (1)
  1. NEXPLANON [Suspect]
     Active Substance: ETONOGESTREL
     Dosage: 1 IMPLANT
     Route: 064
     Dates: start: 2022

REACTIONS (2)
  - Foetal heart rate decreased [Fatal]
  - Foetal exposure during pregnancy [Recovered/Resolved]
